FAERS Safety Report 8907878 (Version 1)
Quarter: 2012Q4

REPORT INFORMATION
  Report Type: 
  Country: US (occurrence: US)
  Receive Date: 20121113
  Receipt Date: 20121113
  Transmission Date: 20130627
  Serious: No
  Sender: FDA-Public Use
  Company Number: US-AMGEN-USASP2012010140

PATIENT
  Age: 55 Year
  Sex: Female

DRUGS (10)
  1. ENBREL [Suspect]
     Indication: PRODUCT USED FOR UNKNOWN INDICATION
     Dosage: 50 mg, qwk
  2. CYMBALTA [Concomitant]
     Dosage: 30 mg, UNK
  3. SINGULAIR [Concomitant]
     Dosage: 4 mg, UNK
  4. AMBIEN [Concomitant]
     Dosage: 10 mg, UNK
  5. LYRICA [Concomitant]
     Dosage: 150 mg, UNK
  6. CARVEDILOL [Concomitant]
     Dosage: 3.125 mg, UNK
  7. SIMVASTATIN [Concomitant]
     Dosage: 40 mg, UNK
  8. ADVAIR UNSPEC [Concomitant]
  9. ESTRADIOL [Concomitant]
     Dosage: 0.037 mg, UNK
  10. ZANAFLEX [Concomitant]
     Dosage: 6 mg, UNK

REACTIONS (2)
  - Injection site urticaria [Unknown]
  - Nasopharyngitis [Unknown]
